FAERS Safety Report 10778910 (Version 4)
Quarter: 2015Q3

REPORT INFORMATION
  Report Type: Spontaneous
  Country: US (occurrence: US)
  Receive Date: 20150210
  Receipt Date: 20150716
  Transmission Date: 20151125
  Serious: Yes (Hospitalization, Other)
  Sender: FDA-Public Use
  Company Number: US-AMGEN-USASL2015011281

PATIENT
  Age: 51 Year
  Sex: Female

DRUGS (1)
  1. ENBREL [Suspect]
     Active Substance: ETANERCEPT
     Indication: RHEUMATOID ARTHRITIS
     Dosage: 50 MG, QWK
     Route: 065
     Dates: start: 20141027, end: 201411

REACTIONS (12)
  - Arthritis [Recovered/Resolved]
  - Ocular hyperaemia [Not Recovered/Not Resolved]
  - Bone disorder [Recovered/Resolved]
  - Rhinalgia [Unknown]
  - Oropharyngeal pain [Unknown]
  - Visual impairment [Unknown]
  - Bone pain [Unknown]
  - Knee arthroplasty [Unknown]
  - Malaise [Unknown]
  - Mobility decreased [Not Recovered/Not Resolved]
  - Procedural pain [Not Recovered/Not Resolved]
  - Neck pain [Unknown]

NARRATIVE: CASE EVENT DATE: 2015
